FAERS Safety Report 11790165 (Version 1)
Quarter: 2015Q4

REPORT INFORMATION
  Report Type: Spontaneous
  Country: DK (occurrence: DK)
  Receive Date: 20151201
  Receipt Date: 20151201
  Transmission Date: 20160305
  Serious: Yes (Hospitalization, Other)
  Sender: FDA-Public Use
  Company Number: DK-SA-2015SA190538

PATIENT
  Age: 50 Year
  Sex: Male

DRUGS (6)
  1. LANTUS [Suspect]
     Active Substance: INSULIN GLARGINE
     Indication: DIABETES MELLITUS
     Route: 058
     Dates: start: 201508
  2. NOVORAPID [Suspect]
     Active Substance: INSULIN ASPART
     Indication: DIABETES MELLITUS
     Dosage: STRENGTH 100U/ML DOSE:12 UNIT(S)
     Route: 058
  3. LANTUS [Suspect]
     Active Substance: INSULIN GLARGINE
     Indication: DIABETES MELLITUS
     Route: 058
  4. LANTUS [Suspect]
     Active Substance: INSULIN GLARGINE
     Indication: DIABETES MELLITUS
     Dosage: DOSE:46 UNIT(S)
     Route: 058
     Dates: start: 201510, end: 201510
  5. KREON [Concomitant]
     Active Substance: PANCRELIPASE
     Indication: PANCREATITIS CHRONIC
  6. APOVIT B-COMBIN [Concomitant]
     Indication: VITAMIN SUPPLEMENTATION

REACTIONS (2)
  - Depressed level of consciousness [Recovered/Resolved]
  - Hypoglycaemia [Recovered/Resolved]

NARRATIVE: CASE EVENT DATE: 201508
